FAERS Safety Report 8022669-5 (Version None)
Quarter: 2011Q4

REPORT INFORMATION
  Report Type: 
  Country: None (occurrence: None)
  Receive Date: 20111230
  Receipt Date: 20111219
  Transmission Date: 20120403
  Serious: Yes (Hospitalization)
  Sender: FDA-Public Use
  Company Number: B0771293A

PATIENT
  Age: 79 Year
  Sex: Female

DRUGS (6)
  1. IPRATROPIUM BROMIDE [Concomitant]
  2. BISOPROLOL FUMARATE [Concomitant]
  3. MEXILETINE HYDROCHLORIDE [Concomitant]
  4. TERBUTALINE SULFATE [Suspect]
     Indication: ASTHMA
     Dosage: 5 MG / NEBULISER
  5. ALBUTEROL SULFATE [Suspect]
     Indication: ASTHMA
     Dosage: 2 MG / THREE TIMES PER DAY / ORAL
     Route: 048
  6. AMIODARONE HCL [Concomitant]

REACTIONS (3)
  - VENTRICULAR TACHYCARDIA [None]
  - RESPIRATORY FAILURE [None]
  - PALPITATIONS [None]
